FAERS Safety Report 18053947 (Version 1)
Quarter: 2020Q3

REPORT INFORMATION
  Report Type: Spontaneous
  Country: US (occurrence: US)
  Receive Date: 20200722
  Receipt Date: 20200722
  Transmission Date: 20201103
  Serious: No
  Sender: FDA-Public Use
  Company Number: US-PFIZER INC-2020276032

PATIENT
  Age: 43 Year
  Sex: Female

DRUGS (1)
  1. LYRICA [Suspect]
     Active Substance: PREGABALIN
     Indication: ABDOMINAL PAIN
     Dosage: 525 MG, DAILY (2 CAPSULES AM, 2 AT NOON, 3 HS (AT BEDTIME))
     Route: 048

REACTIONS (4)
  - Intentional product misuse [Unknown]
  - Off label use [Unknown]
  - Product use in unapproved indication [Unknown]
  - Pain [Unknown]
